FAERS Safety Report 8085181-3 (Version None)
Quarter: 2012Q1

REPORT INFORMATION
  Report Type: 
  Country: None (occurrence: None)
  Receive Date: 20120128
  Receipt Date: 20110325
  Transmission Date: 20120608
  Serious: No
  Sender: FDA-Public Use
  Company Number: US-ABBOTT-11P-163-0714832-00

PATIENT
  Weight: 59.02 kg

DRUGS (3)
  1. HUMIRA [Suspect]
     Indication: RHEUMATOID ARTHRITIS
     Dates: start: 20090101
  2. FOLIC ACID [Concomitant]
     Indication: VITAMIN SUPPLEMENTATION
  3. METHOTREXATE [Concomitant]
     Indication: RHEUMATOID ARTHRITIS
     Dosage: 2.3 X 3 TAB EVERY WEEK

REACTIONS (5)
  - MUSCULOSKELETAL PAIN [None]
  - INJECTION SITE PAIN [None]
  - FATIGUE [None]
  - PAIN [None]
  - JOINT STIFFNESS [None]
